FAERS Safety Report 5873895-2 (Version None)
Quarter: 2008Q3

REPORT INFORMATION
  Report Type: 
  Country: None (occurrence: None)
  Receive Date: 20080908
  Receipt Date: 20080904
  Transmission Date: 20090109
  Serious: Yes (Death)
  Sender: FDA-Public Use
  Company Number: GB-ASTRAZENECA-2008GB01657

PATIENT
  Age: 61 Year
  Sex: Female

DRUGS (3)
  1. MARCAINE [Suspect]
     Indication: STEROID THERAPY
     Route: 065
     Dates: start: 20080902, end: 20080902
  2. OMNIPAQUE 140 [Concomitant]
  3. KENALOG [Concomitant]

REACTIONS (1)
  - MULTI-ORGAN FAILURE [None]
